FAERS Safety Report 10229798 (Version 1)
Quarter: 2014Q2

REPORT INFORMATION
  Report Type: Spontaneous
  Country: US (occurrence: US)
  Receive Date: 20140611
  Receipt Date: 20140611
  Transmission Date: 20141212
  Serious: Yes (Hospitalization)
  Sender: FDA-Public Use
  Company Number: US-JNJFOC-20140601387

PATIENT
  Sex: Male

DRUGS (2)
  1. TOPAMAX [Suspect]
     Indication: MIGRAINE
     Route: 048
  2. TOPAMAX [Suspect]
     Indication: MIGRAINE
     Route: 048

REACTIONS (4)
  - Hypocalcaemia [Recovered/Resolved]
  - Fall [Unknown]
  - Self-medication [Unknown]
  - Inappropriate schedule of drug administration [Unknown]
